FAERS Safety Report 6177708-3 (Version None)
Quarter: 2009Q2

REPORT INFORMATION
  Report Type: 
  Country: None (occurrence: None)
  Receive Date: 20090504
  Receipt Date: 20090422
  Transmission Date: 20091009
  Serious: Yes (Other)
  Sender: FDA-Public Use
  Company Number: DE-RANBAXY-2008RR-17601

PATIENT
  Age: 78 Year
  Sex: Female
  Weight: 78 kg

DRUGS (10)
  1. MELOXICAM [Suspect]
     Indication: INTERVERTEBRAL DISC PROTRUSION
     Dosage: 15 DF, QD
     Route: 048
     Dates: start: 20070122, end: 20070205
  2. AMITRIPTLINE HYDROCHLORIDE TAB [Suspect]
     Indication: SLEEP DISORDER
     Dosage: 12.5 MG, QD
     Route: 048
     Dates: start: 20030101
  3. NOVALGIN [Suspect]
     Indication: PAIN
     Dosage: UNK GTT, UNK
     Route: 048
     Dates: start: 20070205, end: 20070510
  4. NOVAMINSULFON [Concomitant]
     Indication: PAIN
     Dosage: 500 MG, QD
     Route: 048
     Dates: start: 20070511, end: 20070525
  5. LEVOTHYROXINE SODIUM [Concomitant]
     Indication: HYPOTHYROIDISM
     Dosage: 125 UG, QD
     Route: 048
     Dates: start: 19960601, end: 20071027
  6. ASPIRIN PLUS C [Concomitant]
     Indication: BONE PAIN
     Dosage: 2 DF, UNK
     Dates: start: 19600101, end: 20071026
  7. WET COMOD [Concomitant]
     Dosage: UNK
     Route: 047
     Dates: start: 20060801
  8. TIRGON [Concomitant]
     Indication: CONSTIPATION
     Dosage: 10 MG, QD
     Dates: start: 19970101
  9. KALZIUM [Concomitant]
     Indication: OSTEOPOROSIS
     Dosage: 1 DF, QD
     Route: 048
     Dates: start: 19700101
  10. MAGNESIUM SULFATE [Concomitant]
     Dosage: 1 DF, QD
     Route: 048
     Dates: start: 19700101

REACTIONS (1)
  - AUTOIMMUNE THROMBOCYTOPENIA [None]
